FAERS Safety Report 5630292-2 (Version None)
Quarter: 2008Q1

REPORT INFORMATION
  Report Type: 
  Country: None (occurrence: None)
  Receive Date: 20080219
  Receipt Date: 20080208
  Transmission Date: 20080703
  Serious: Yes (Hospitalization)
  Sender: FDA-Public Use
  Company Number: DE-JNJFOC-20080100942

PATIENT
  Sex: Male
  Weight: 70 kg

DRUGS (2)
  1. INFLIXIMAB [Suspect]
  2. INFLIXIMAB [Suspect]
     Indication: PSORIASIS

REACTIONS (3)
  - CHOLECYSTITIS [None]
  - CHOLELITHIASIS [None]
  - GASTRITIS [None]
